FAERS Safety Report 24980668 (Version 1)
Quarter: 2025Q1

REPORT INFORMATION
  Report Type: Spontaneous
  Country: KW (occurrence: KW)
  Receive Date: 20250218
  Receipt Date: 20250218
  Transmission Date: 20250409
  Serious: Yes (Other)
  Sender: NOVARTIS
  Company Number: KW-002147023-NVSC2025KW024875

PATIENT
  Age: 55 Year
  Sex: Male

DRUGS (2)
  1. TASIGNA [Suspect]
     Active Substance: NILOTINIB
     Indication: Chronic myeloid leukaemia
     Dosage: 400 MG, BID
     Route: 048
  2. TASIGNA [Suspect]
     Active Substance: NILOTINIB
     Dosage: 300 MG, BID
     Route: 048

REACTIONS (2)
  - Cerebrovascular accident [Unknown]
  - Myocardial infarction [Unknown]
